FAERS Safety Report 14816153 (Version 1)
Quarter: 2018Q2

REPORT INFORMATION
  Report Type: Spontaneous
  Country: US (occurrence: US)
  Receive Date: 20180417
  Receipt Date: 20180417
  Transmission Date: 20180711
  Serious: Yes (Disabling, Other)
  Sender: FDA-Public Use
  Company Number: None

PATIENT
  Age: 23 Year
  Sex: Female
  Weight: 68.04 kg

DRUGS (2)
  1. WOMENS DAILY VITAMIN [Concomitant]
  2. MIRENA [Suspect]
     Active Substance: LEVONORGESTREL

REACTIONS (8)
  - Unevaluable event [None]
  - Migraine [None]
  - Dizziness [None]
  - Tinnitus [None]
  - Medical device site pain [None]
  - Haemorrhage [None]
  - Visual impairment [None]
  - pH body fluid abnormal [None]

NARRATIVE: CASE EVENT DATE: 20170901
